FAERS Safety Report 9579466 (Version 2)
Quarter: 2013Q4

REPORT INFORMATION
  Report Type: Spontaneous
  Country: US (occurrence: US)
  Receive Date: 20131001
  Receipt Date: 20131001
  Transmission Date: 20140711
  Serious: No
  Sender: FDA-Public Use
  Company Number: US-AMGEN-USASP2013013581

PATIENT
  Age: 37 Year
  Sex: Male
  Weight: 90.7 kg

DRUGS (4)
  1. ENBREL [Suspect]
     Indication: PSORIASIS
     Dosage: 50 MG, 2 TIMES/WK
     Route: 058
     Dates: start: 200804, end: 20121220
  2. LIPITOR [Concomitant]
     Dosage: 10 MG, UNK
  3. ASA [Concomitant]
     Dosage: 81 MG, UNK
  4. WELCHOL [Concomitant]
     Dosage: 3.75 G, UNK

REACTIONS (1)
  - Drug ineffective [Unknown]
